FAERS Safety Report 4449466-1 (Version None)
Quarter: 2004Q3

REPORT INFORMATION
  Report Type: 
  Country: None (occurrence: None)
  Receive Date: 20040910
  Receipt Date: 20040910
  Transmission Date: 20050211
  Serious: No
  Sender: FDA-Public Use
  Company Number: None

PATIENT
  Age: 60 Year
  Sex: Female
  Weight: 59 kg

DRUGS (3)
  1. PENICILLIN G [Suspect]
     Indication: STREPTOCOCCAL SEPSIS
     Dosage: 3 MU Q4HR IV
     Route: 042
     Dates: start: 20040816
  2. PENICILLIN G [Suspect]
     Indication: STREPTOCOCCAL SEPSIS
     Dosage: 3 MU Q4HR IV
     Route: 042
     Dates: start: 20040906
  3. PENICILLIN G [Suspect]

REACTIONS (1)
  - RASH ERYTHEMATOUS [None]
